FAERS Safety Report 9403679 (Version 2)
Quarter: 2013Q3

REPORT INFORMATION
  Report Type: Report from Study
  Country: JP (occurrence: JP)
  Receive Date: 20130717
  Receipt Date: 20130813
  Transmission Date: 20140515
  Serious: Yes (Death)
  Sender: FDA-Public Use
  Company Number: JP-ROCHE-1249268

PATIENT
  Age: 72 Year
  Sex: Female
  Weight: 41 kg

DRUGS (6)
  1. METHOXY POLYETHYLENE GLYCOL-EPOETIN BETA [Suspect]
     Indication: NEPHROGENIC ANAEMIA
     Route: 042
     Dates: start: 20120705, end: 20130409
  2. TAKEPRON [Concomitant]
     Indication: GLOMERULONEPHRITIS CHRONIC
     Route: 048
  3. CINACALCET HYDROCHLORIDE [Concomitant]
     Indication: GLOMERULONEPHRITIS CHRONIC
     Route: 048
  4. SELBEX [Concomitant]
     Indication: GLOMERULONEPHRITIS CHRONIC
     Route: 048
  5. RASILEZ [Concomitant]
     Indication: GLOMERULONEPHRITIS CHRONIC
     Route: 048
  6. ATELEC [Concomitant]
     Indication: GLOMERULONEPHRITIS CHRONIC
     Route: 048

REACTIONS (3)
  - Ureteric cancer [Fatal]
  - Metastases to liver [Fatal]
  - Metastases to lung [Fatal]
